FAERS Safety Report 7875781-5 (Version None)
Quarter: 2011Q4

REPORT INFORMATION
  Report Type: 
  Country: None (occurrence: None)
  Receive Date: 20111031
  Receipt Date: 20111026
  Transmission Date: 20120403
  Serious: Yes (Other)
  Sender: FDA-Public Use
  Company Number: US-AMGEN-USASP2011055617

PATIENT
  Age: 54 Year
  Sex: Male

DRUGS (1)
  1. ENBREL [Suspect]
     Indication: RHEUMATOID ARTHRITIS
     Dosage: 50 MG, QWK
     Dates: start: 20110908

REACTIONS (10)
  - DYSPNOEA [None]
  - GAIT DISTURBANCE [None]
  - AMBLYOPIA [None]
  - ABDOMINAL DISCOMFORT [None]
  - MALAISE [None]
  - HYPERHIDROSIS [None]
  - NAUSEA [None]
  - MUSCLE SPASMS [None]
  - ASTHENOPIA [None]
  - FATIGUE [None]
